FAERS Safety Report 7900264-3 (Version None)
Quarter: 2011Q4

REPORT INFORMATION
  Report Type: 
  Country: None (occurrence: None)
  Receive Date: 20111108
  Receipt Date: 20111028
  Transmission Date: 20120403
  Serious: Yes (Other)
  Sender: FDA-Public Use
  Company Number: US-JNJFOC-20111013378

PATIENT
  Sex: Female

DRUGS (1)
  1. REMICADE [Suspect]
     Indication: RHEUMATOID ARTHRITIS
     Route: 042
     Dates: start: 20100301, end: 20110929

REACTIONS (3)
  - SYSTEMIC LUPUS ERYTHEMATOSUS [None]
  - ANTIBODY TEST POSITIVE [None]
  - DRUG INEFFECTIVE [None]
